FAERS Safety Report 7611393-6 (Version None)
Quarter: 2011Q3

REPORT INFORMATION
  Report Type: 
  Country: None (occurrence: None)
  Receive Date: 20110715
  Receipt Date: 20110707
  Transmission Date: 20111222
  Serious: Yes (Hospitalization, Other)
  Sender: FDA-Public Use
  Company Number: JP-ROCHE-781723

PATIENT
  Age: 38 Year
  Sex: Female

DRUGS (28)
  1. MYCOPHENOLATE MOFETIL [Suspect]
     Route: 048
     Dates: start: 20070403, end: 20081009
  2. MYCOPHENOLATE MOFETIL [Suspect]
     Route: 048
     Dates: start: 20081027, end: 20081029
  3. PREDNISOLONE [Concomitant]
     Route: 048
     Dates: start: 20061226, end: 20070903
  4. LASIX [Concomitant]
     Route: 048
     Dates: start: 20061221, end: 20070411
  5. GAMMA-GLOBULIN ^BEHRINGWERKE^ [Concomitant]
     Route: 042
     Dates: start: 20061228, end: 20070101
  6. MYCOPHENOLATE MOFETIL [Suspect]
     Route: 048
     Dates: start: 20061217, end: 20061218
  7. MYCOPHENOLATE MOFETIL [Suspect]
     Route: 048
     Dates: start: 20070215, end: 20070215
  8. ASPIRIN [Concomitant]
     Route: 048
     Dates: start: 20061223, end: 20100208
  9. EMPECID [Concomitant]
     Route: 050
     Dates: start: 20061227
  10. SULFAMETHOXAZOLE [Concomitant]
     Route: 048
     Dates: start: 20070108, end: 20070208
  11. PROGRAF [Suspect]
     Route: 048
     Dates: start: 20061218
  12. ZONISAMIDE [Concomitant]
     Route: 048
     Dates: start: 20070216
  13. MYCOPHENOLATE MOFETIL [Suspect]
     Route: 048
     Dates: start: 20070322, end: 20070322
  14. DEPAKENE [Concomitant]
     Route: 048
     Dates: start: 20080901
  15. LANSOPRAZOLE [Concomitant]
     Route: 048
     Dates: start: 20061228, end: 20070323
  16. AMOBAN [Concomitant]
     Route: 048
     Dates: start: 20061228, end: 20070601
  17. MYCOPHENOLATE MOFETIL [Suspect]
     Route: 048
     Dates: start: 20070218, end: 20070307
  18. MYCOPHENOLATE MOFETIL [Suspect]
     Route: 048
     Dates: start: 20070309, end: 20070321
  19. VALGANCICLOVIR [Suspect]
     Indication: PROPHYLAXIS
     Route: 048
     Dates: start: 20061227, end: 20070316
  20. MYCOPHENOLATE MOFETIL [Suspect]
     Route: 048
     Dates: start: 20070216, end: 20070216
  21. DEPAKENE [Concomitant]
     Route: 048
     Dates: start: 20061228, end: 20080901
  22. NORVASC [Concomitant]
     Route: 048
     Dates: start: 20070105
  23. FERROUS CITRATE [Concomitant]
     Route: 048
     Dates: start: 20070316, end: 20100113
  24. MYCOPHENOLATE MOFETIL [Suspect]
     Route: 048
     Dates: start: 20061219, end: 20070214
  25. MYCOPHENOLATE MOFETIL [Suspect]
     Route: 048
     Dates: start: 20070217, end: 20070217
  26. MYCOPHENOLATE MOFETIL [Suspect]
     Route: 048
     Dates: start: 20070308, end: 20070308
  27. SOLU-MEDROL [Concomitant]
     Route: 042
     Dates: start: 20061218, end: 20061224
  28. VANCOMYCIN [Concomitant]
     Route: 042
     Dates: start: 20061217, end: 20061223

REACTIONS (6)
  - BONE MARROW FAILURE [None]
  - STAPHYLOCOCCAL INFECTION [None]
  - EPILEPSY [None]
  - NEUTROPHIL COUNT DECREASED [None]
  - GRANULOCYTOPENIA [None]
  - UTERINE LEIOMYOMA [None]
